FAERS Safety Report 7682187-0 (Version None)
Quarter: 2011Q3

REPORT INFORMATION
  Report Type: 
  Country: None (occurrence: None)
  Receive Date: 20110815
  Receipt Date: 20110810
  Transmission Date: 20111222
  Serious: No
  Sender: FDA-Public Use
  Company Number: US-PFIZER INC-2011183730

PATIENT
  Sex: Male

DRUGS (12)
  1. RANITIDINE [Concomitant]
     Dosage: 150 MG, UNK
  2. BENADRYL [Concomitant]
     Dosage: 25 MG, UNK
  3. CLARITIN [Concomitant]
     Dosage: 10 MG, UNK
  4. PROAIR HFA [Concomitant]
  5. CITALOPRAM [Concomitant]
     Dosage: 10 MG, UNK
  6. WARFARIN [Concomitant]
     Dosage: 1 MG, UNK
  7. SUTENT [Suspect]
     Dosage: 50 MG, ONCE DAILY X 28 DAYS
     Route: 048
  8. GABAPENTIN [Concomitant]
     Dosage: 100 MG, UNK
  9. LORAZEPAM [Concomitant]
     Dosage: 0.5 MG, UNK
  10. PANTOPRAZOLE [Concomitant]
     Dosage: 20 MG, UNK
  11. PARACETAMOL [Concomitant]
     Dosage: 325 MG
  12. SPIRIVA [Concomitant]

REACTIONS (1)
  - DIARRHOEA [None]
